FAERS Safety Report 8063248-3 (Version None)
Quarter: 2012Q1

REPORT INFORMATION
  Report Type: 
  Country: None (occurrence: None)
  Receive Date: 20120123
  Receipt Date: 20120118
  Transmission Date: 20120608
  Serious: Yes (Death)
  Sender: FDA-Public Use
  Company Number: PHEH2012US001587

PATIENT
  Sex: Male

DRUGS (4)
  1. MAGNESIUM SULFATE [Suspect]
  2. PLAVIX [Suspect]
  3. LASIX [Suspect]
  4. DIOVAN [Suspect]
     Dosage: 160 MG, QD

REACTIONS (1)
  - DEATH [None]
